FAERS Safety Report 11916999 (Version 3)
Quarter: 2016Q2

REPORT INFORMATION
  Report Type: Spontaneous
  Country: AT (occurrence: AT)
  Receive Date: 20160114
  Receipt Date: 20160505
  Transmission Date: 20160815
  Serious: Yes (Death, Life-Threatening, Hospitalization, Other)
  Sender: FDA-Public Use
  Company Number: AT-ASTRAZENECA-2016SE03214

PATIENT
  Age: 37 Year
  Sex: Male
  Weight: 85 kg

DRUGS (18)
  1. TAMSULOSIN [Concomitant]
     Active Substance: TAMSULOSIN
     Dates: end: 20150806
  2. ZOLDEM [Suspect]
     Active Substance: ZOLPIDEM TARTRATE
     Route: 065
     Dates: start: 2012, end: 20150806
  3. CANDESARTAN CILEXETIL AND HYDROCHLOROTHIAZIDE [Concomitant]
     Active Substance: CANDESARTAN CILEXETIL\HYDROCHLOROTHIAZIDE
     Dosage: 16 MG/12.5 MG, 1 DOSAGE FORM DAILY
     Dates: end: 20150806
  4. SERETIDE [Concomitant]
     Active Substance: FLUTICASONE PROPIONATE\SALMETEROL XINAFOATE
     Dosage: 2 PUFFS TWICE A DAY
     Dates: end: 20150806
  5. ESOMEPRAZOLE [Concomitant]
     Active Substance: ESOMEPRAZOLE
     Dates: end: 20150806
  6. CONCOR [Concomitant]
     Active Substance: BISOPROLOL FUMARATE
     Dates: end: 20150806
  7. VALPROIC ACID. [Suspect]
     Active Substance: VALPROIC ACID
     Dosage: HALF DOSAGE FORM IN THE MORNING AND ONE DOSAGE FORM AT NIGHT
     Route: 065
     Dates: start: 201508
  8. SIMVASTATIN. [Concomitant]
     Active Substance: SIMVASTATIN
     Dosage: RATIOPHARM, 20 MG DAILY
     Dates: end: 20150806
  9. VESICARE [Concomitant]
     Active Substance: SOLIFENACIN SUCCINATE
     Dates: end: 20150806
  10. SEROQUEL XR [Suspect]
     Active Substance: QUETIAPINE FUMARATE
     Indication: BIPOLAR DISORDER
     Route: 048
     Dates: end: 20150806
  11. SEROQUEL XR [Suspect]
     Active Substance: QUETIAPINE FUMARATE
     Indication: BIPOLAR DISORDER
     Route: 048
  12. VALPROIC ACID. [Suspect]
     Active Substance: VALPROIC ACID
     Route: 065
     Dates: start: 20150807
  13. PRADAXA [Concomitant]
     Active Substance: DABIGATRAN ETEXILATE MESYLATE
  14. MIRTABENE [Suspect]
     Active Substance: MIRTAZAPINE
     Route: 065
     Dates: start: 2012, end: 20150806
  15. VALPROIC ACID. [Suspect]
     Active Substance: VALPROIC ACID
     Route: 065
     Dates: end: 20150806
  16. BERODUAL [Concomitant]
     Active Substance: FENOTEROL HYDROBROMIDE\IPRATROPIUM BROMIDE
     Dates: end: 20150806
  17. SINGULAIR [Concomitant]
     Active Substance: MONTELUKAST SODIUM
     Dates: end: 20150806
  18. LEVETIRACETAM. [Suspect]
     Active Substance: LEVETIRACETAM
     Indication: BIPOLAR DISORDER
     Route: 065
     Dates: start: 2012, end: 20150806

REACTIONS (39)
  - Brain oedema [Fatal]
  - Gastroduodenitis [Fatal]
  - Ataxia [Unknown]
  - Indifference [Unknown]
  - Emphysema [Fatal]
  - Aspiration [Unknown]
  - Cardiac disorder [Unknown]
  - Speech disorder [Unknown]
  - Pancreatic steatosis [Fatal]
  - Insomnia [Unknown]
  - Coronary artery disease [Unknown]
  - Toxicity to various agents [Fatal]
  - Vertigo [Fatal]
  - Gait disturbance [Unknown]
  - Abnormal behaviour [Unknown]
  - Dizziness [Unknown]
  - Syncope [Unknown]
  - Fatigue [Unknown]
  - Bipolar disorder [Unknown]
  - Cardiac hypertrophy [Fatal]
  - Pulmonary oedema [Fatal]
  - Retching [Unknown]
  - Aggression [Unknown]
  - Hallucination [Unknown]
  - Lung disorder [Unknown]
  - Fall [Unknown]
  - Anxiety [Unknown]
  - Benign prostatic hyperplasia [Fatal]
  - Listless [Unknown]
  - Conduct disorder [Unknown]
  - Cystitis [Fatal]
  - Diplopia [Unknown]
  - Nausea [Unknown]
  - Bladder trabeculation [Fatal]
  - Pyelocystitis [Fatal]
  - Arteriosclerosis [Fatal]
  - Hypotension [Unknown]
  - Disturbance in attention [Unknown]
  - Epilepsy [Unknown]

NARRATIVE: CASE EVENT DATE: 2012
